FAERS Safety Report 16352024 (Version 1)
Quarter: 2019Q2

REPORT INFORMATION
  Report Type: Spontaneous
  Country: US (occurrence: US)
  Receive Date: 20190524
  Receipt Date: 20190524
  Transmission Date: 20190711
  Serious: No
  Sender: FDA-Public Use
  Company Number: US-NOVEN PHARMACEUTICALS, INC.-US2019000012

PATIENT

DRUGS (1)
  1. DAYTRANA [Suspect]
     Active Substance: METHYLPHENIDATE
     Indication: ATTENTION DEFICIT/HYPERACTIVITY DISORDER
     Dosage: 30 MG, UNKNOWN
     Route: 062
     Dates: end: 2018

REACTIONS (7)
  - Product storage error [Recovered/Resolved]
  - Drug diversion [Recovered/Resolved]
  - Therapy cessation [Not Recovered/Not Resolved]
  - Product quality issue [Recovered/Resolved]
  - Product administration error [Recovered/Resolved]
  - Off label use [Recovered/Resolved]
  - No adverse event [Unknown]

NARRATIVE: CASE EVENT DATE: 201812
